FAERS Safety Report 6154647-5 (Version None)
Quarter: 2009Q2

REPORT INFORMATION
  Report Type: 
  Country: None (occurrence: None)
  Receive Date: 20090414
  Receipt Date: 20090408
  Transmission Date: 20091009
  Serious: Yes (Other)
  Sender: FDA-Public Use
  Company Number: US-ELI_LILLY_AND_COMPANY-US200904002164

PATIENT
  Age: 71 Year
  Sex: Male

DRUGS (4)
  1. BYETTA [Suspect]
     Dosage: 5 UG, 2/D
     Route: 058
     Dates: start: 20080601, end: 20090209
  2. BYETTA [Suspect]
     Dosage: 10 UG, 2/D
     Route: 058
     Dates: start: 20090210
  3. HUMALOG                                 /GFR/ [Concomitant]
     Dosage: UNK, AS NEEDED
  4. LANTUS [Concomitant]
     Dosage: 40 U, DAILY (1/D)

REACTIONS (3)
  - GASTRIC BANDING [None]
  - HYPOGLYCAEMIA [None]
  - ROAD TRAFFIC ACCIDENT [None]
